FAERS Safety Report 6526494-3 (Version None)
Quarter: 2009Q4

REPORT INFORMATION
  Report Type: 
  Country: None (occurrence: None)
  Receive Date: 20091214
  Receipt Date: 20081110
  Transmission Date: 20100525
  Serious: Yes (Other)
  Sender: FDA-Public Use
  Company Number: 596450

PATIENT
  Age: 52 Year
  Sex: Male

DRUGS (6)
  1. PEGASYS [Suspect]
     Indication: HEPATITIS C VIRUS TEST
     Dates: start: 20080401
  2. RIBAVIRIN [Suspect]
     Indication: HEPATITIS C VIRUS TEST
     Dosage: 3 DOSE FORM DAILY
     Dates: start: 20080401
  3. WELLBUTRIN [Concomitant]
  4. PAXIL [Concomitant]
  5. PROZAC [Concomitant]
  6. SEROQUEL [Concomitant]

REACTIONS (2)
  - HOMICIDAL IDEATION [None]
  - PSYCHOTIC DISORDER [None]
